FAERS Safety Report 8859196 (Version 1)
Quarter: 2012Q4

REPORT INFORMATION
  Report Type: 
  Country: US (occurrence: US)
  Receive Date: 20121024
  Receipt Date: 20121024
  Transmission Date: 20130627
  Serious: No
  Sender: FDA-Public Use
  Company Number: US-PFIZER INC-2012263655

PATIENT
  Age: 92 Year
  Sex: Female
  Weight: 43.08 kg

DRUGS (1)
  1. PANTOPRAZOLE [Suspect]
     Indication: GASTRIC DISORDER
     Dosage: UNK

REACTIONS (1)
  - Hypersensitivity [Unknown]
